FAERS Safety Report 4413590-X (Version None)
Quarter: 2004Q3

REPORT INFORMATION
  Report Type: 
  Country: None (occurrence: None)
  Receive Date: 20040728
  Receipt Date: 20040715
  Transmission Date: 20050211
  Serious: Yes (Hospitalization)
  Sender: FDA-Public Use
  Company Number: 2004221656DE

PATIENT
  Age: 51 Year
  Sex: Female
  Weight: 75 kg

DRUGS (1)
  1. BEXTRA [Suspect]
     Indication: ANALGESIC EFFECT
     Dosage: 20 MG, QD, ORAL
     Route: 048
     Dates: start: 20040624, end: 20040624

REACTIONS (5)
  - ARTHROPATHY [None]
  - CONFUSIONAL STATE [None]
  - MENTAL DISORDER DUE TO A GENERAL MEDICAL CONDITION [None]
  - MUSCLE RIGIDITY [None]
  - STUPOR [None]
